FAERS Safety Report 17801065 (Version 1)
Quarter: 2020Q2

REPORT INFORMATION
  Report Type: Other
  Country: US (occurrence: US)
  Receive Date: 20200519
  Receipt Date: 20200519
  Transmission Date: 20200714
  Serious: No
  Sender: FDA-Public Use
  Company Number: US-BIOVITRUM-2019US1160

PATIENT
  Sex: Male

DRUGS (2)
  1. KINERET [Suspect]
     Active Substance: ANAKINRA
     Indication: RHEUMATOID ARTHRITIS
     Route: 058
     Dates: start: 20190424
  2. KINERET [Suspect]
     Active Substance: ANAKINRA
     Indication: PYREXIA

REACTIONS (4)
  - Nausea [Unknown]
  - Vomiting [Unknown]
  - Off label use [Not Recovered/Not Resolved]
  - Malaise [Unknown]
